FAERS Safety Report 19938247 (Version 2)
Quarter: 2021Q4

REPORT INFORMATION
  Report Type: Report from Study
  Country: CO (occurrence: CO)
  Receive Date: 20211011
  Receipt Date: 20211108
  Transmission Date: 20220303
  Serious: Yes (Hospitalization)
  Sender: FDA-Public Use
  Company Number: CO-NOVOPROD-853381

PATIENT
  Age: 85 Year
  Sex: Female

DRUGS (6)
  1. LEVEMIR [Suspect]
     Active Substance: INSULIN DETEMIR
     Dosage: 12 IU
     Route: 065
  2. LEVEMIR [Suspect]
     Active Substance: INSULIN DETEMIR
     Dosage: 16 IU
     Route: 065
  3. LEVEMIR [Suspect]
     Active Substance: INSULIN DETEMIR
     Dosage: 16 IU, TID
     Route: 065
  4. LEVEMIR [Suspect]
     Active Substance: INSULIN DETEMIR
     Dosage: 18 IU, TID
     Route: 065
  5. LEVEMIR [Suspect]
     Active Substance: INSULIN DETEMIR
     Indication: Type 2 diabetes mellitus
     Dosage: 14 IU, TID
     Route: 065
     Dates: start: 2017
  6. LEVOTHYROXINE [Concomitant]
     Active Substance: LEVOTHYROXINE
     Dosage: UNK
     Route: 065

REACTIONS (3)
  - Blood glucose decreased [Recovered/Resolved]
  - Generalised oedema [Recovered/Resolved]
  - Hyperglycaemia [Recovered/Resolved]

NARRATIVE: CASE EVENT DATE: 20210824
